FAERS Safety Report 21065410 (Version 1)
Quarter: 2022Q3

REPORT INFORMATION
  Report Type: Spontaneous
  Country: NL (occurrence: NL)
  Receive Date: 20220711
  Receipt Date: 20220711
  Transmission Date: 20221027
  Serious: Yes (Other)
  Sender: FDA-Public Use
  Company Number: NL-009507513-2207NLD001984

PATIENT
  Age: 40 Year
  Sex: Female

DRUGS (1)
  1. PEMBROLIZUMAB [Suspect]
     Active Substance: PEMBROLIZUMAB
     Indication: Non-small cell lung cancer
     Dosage: UNK, Q3W

REACTIONS (4)
  - Immune-mediated neuropathy [Unknown]
  - Immune-mediated enterocolitis [Unknown]
  - Immune-mediated thyroiditis [Unknown]
  - Immune-mediated dermatitis [Unknown]
